FAERS Safety Report 7981209-7 (Version None)
Quarter: 2011Q4

REPORT INFORMATION
  Report Type: 
  Country: None (occurrence: None)
  Receive Date: 20111212
  Receipt Date: 20111125
  Transmission Date: 20120403
  Serious: Yes (Congenital Anomaly)
  Sender: FDA-Public Use
  Company Number: 1000026075

PATIENT
  Sex: Male
  Weight: 1.2 kg

DRUGS (3)
  1. FOLMET (FOLIC ACID [Concomitant]
  2. CITALOPRAM HYDROBROMIDE [Suspect]
     Dosage: 30 MG (30 MG, 1 IN 1 D), TRANSPLACENTAL
     Route: 062
     Dates: start: 20020429
  3. SELEXID PIVMECILLINAM) [Concomitant]

REACTIONS (4)
  - PREMATURE BABY [None]
  - DISTURBANCE IN ATTENTION [None]
  - PSYCHOMOTOR HYPERACTIVITY [None]
  - MATERNAL DRUGS AFFECTING FOETUS [None]
